FAERS Safety Report 7571291-3 (Version None)
Quarter: 2011Q2

REPORT INFORMATION
  Report Type: 
  Country: None (occurrence: None)
  Receive Date: 20110624
  Receipt Date: 20110616
  Transmission Date: 20111010
  Serious: Yes (Death)
  Sender: FDA-Public Use
  Company Number: A0932615A

PATIENT
  Age: 64 Year
  Sex: Female

DRUGS (3)
  1. SUCRALFATE [Concomitant]
  2. ONDANSETRON [Concomitant]
  3. TYKERB [Suspect]
     Dosage: 1250MG PER DAY
     Route: 048
     Dates: start: 20110322, end: 20110405

REACTIONS (1)
  - DISEASE PROGRESSION [None]
